FAERS Safety Report 6835926-2 (Version None)
Quarter: 2010Q3

REPORT INFORMATION
  Report Type: 
  Country: None (occurrence: None)
  Receive Date: 20100713
  Receipt Date: 20100707
  Transmission Date: 20110219
  Serious: Yes (Hospitalization)
  Sender: FDA-Public Use
  Company Number: A0784665A

PATIENT
  Age: 70 Year
  Sex: Male

DRUGS (1)
  1. AVANDIA [Suspect]
     Dosage: 8MG PER DAY
     Route: 048
     Dates: start: 19990101, end: 20070501

REACTIONS (4)
  - AORTIC VALVE REPLACEMENT [None]
  - CARDIAC DISORDER [None]
  - MYOCARDIAL INFARCTION [None]
  - PAIN IN EXTREMITY [None]
